FAERS Safety Report 15449006 (Version 1)
Quarter: 2018Q3

REPORT INFORMATION
  Report Type: Spontaneous
  Country: US (occurrence: US)
  Receive Date: 20180926
  Receipt Date: 20180926
  Transmission Date: 20181010
  Serious: Yes (Hospitalization)
  Sender: FDA-Public Use
  Company Number: None

PATIENT
  Age: 69 Year
  Sex: Female

DRUGS (2)
  1. TRULICITY [Suspect]
     Active Substance: DULAGLUTIDE
  2. TRULICITY [Concomitant]
     Active Substance: DULAGLUTIDE
     Dates: start: 20180423, end: 20180916

REACTIONS (12)
  - Fatigue [None]
  - Headache [None]
  - Dizziness [None]
  - Tremor [None]
  - Hypophagia [None]
  - Vomiting [None]
  - Rhinorrhoea [None]
  - Dyspnoea [None]
  - Dyspepsia [None]
  - Nausea [None]
  - Abdominal pain [None]
  - Acute kidney injury [None]

NARRATIVE: CASE EVENT DATE: 20180916
